FAERS Safety Report 8960716 (Version 1)
Quarter: 2012Q4

REPORT INFORMATION
  Report Type: Spontaneous
  Country: US (occurrence: None)
  Receive Date: 20121207
  Receipt Date: 20121207
  Transmission Date: 20130627
  Serious: Yes (Other)
  Sender: FDA-Public Use
  Company Number: None

PATIENT
  Age: 63 Year
  Sex: Female
  Weight: 99.79 kg

DRUGS (1)
  1. LEVEMIR [Suspect]
     Indication: DIABETES
     Dosage: 10 UNITS   DAILY   SQ
     Route: 058
     Dates: start: 20121126, end: 20121128

REACTIONS (2)
  - Wrong technique in drug usage process [None]
  - Inadequate aseptic technique in use of product [None]
